FAERS Safety Report 8043181-3 (Version None)
Quarter: 2012Q1

REPORT INFORMATION
  Report Type: 
  Country: None (occurrence: None)
  Receive Date: 20120112
  Receipt Date: 20120109
  Transmission Date: 20120608
  Serious: Yes (Other)
  Sender: FDA-Public Use
  Company Number: VE-ABBOTT-12P-178-0891729-00

PATIENT
  Sex: Female

DRUGS (1)
  1. HUMIRA [Suspect]
     Indication: RHEUMATOID ARTHRITIS
     Route: 058
     Dates: start: 20070129, end: 20111213

REACTIONS (6)
  - BRONCHITIS [None]
  - PYREXIA [None]
  - DYSPNOEA [None]
  - INFLUENZA [None]
  - INCREASED UPPER AIRWAY SECRETION [None]
  - COUGH [None]
